FAERS Safety Report 17926370 (Version 1)
Quarter: 2020Q2

REPORT INFORMATION
  Report Type: Spontaneous
  Country: US (occurrence: US)
  Receive Date: 20200623
  Receipt Date: 20200623
  Transmission Date: 20200714
  Serious: No
  Sender: FDA-Public Use
  Company Number: US-INCYTE CORPORATION-2020IN005413

PATIENT

DRUGS (2)
  1. JAKAFI [Suspect]
     Active Substance: RUXOLITINIB
     Indication: POLYCYTHAEMIA VERA
     Dosage: 10 MG BID (MONDAY, WEDNESDAY, FRIDAY), 5 MG BID (REST OF THE WEEK)
     Route: 048
     Dates: start: 20190214
  2. JAKAFI [Suspect]
     Active Substance: RUXOLITINIB
     Dosage: 10 MG BID (MONDAY, WEDNESDAY, FRIDAY), 5 MG BID (REST OF THE WEEK)
     Route: 048
     Dates: start: 20190525

REACTIONS (1)
  - Rash [Unknown]
